FAERS Safety Report 8974347 (Version 1)
Quarter: 2012Q4

REPORT INFORMATION
  Report Type: 
  Country: US (occurrence: US)
  Receive Date: 20121220
  Receipt Date: 20121220
  Transmission Date: 20130627
  Serious: No
  Sender: FDA-Public Use
  Company Number: US-PFIZER INC-2012321800

PATIENT
  Age: 20 Year
  Sex: Female

DRUGS (2)
  1. ZOLOFT [Suspect]
     Indication: DEPRESSION
     Dosage: 50 mg, daily
     Dates: start: 20121216, end: 20121217
  2. BENADRYL [Suspect]
     Indication: ALLERGY
     Dosage: UNK, as needed

REACTIONS (14)
  - Middle insomnia [Unknown]
  - Malaise [Unknown]
  - Gait disturbance [Unknown]
  - Dizziness [Unknown]
  - Feeling jittery [Unknown]
  - Asthenia [Unknown]
  - Coordination abnormal [Unknown]
  - Nausea [Unknown]
  - Tremor [Unknown]
  - Dry mouth [Unknown]
  - Feeling abnormal [Unknown]
  - Eye disorder [Unknown]
  - Heart rate increased [Not Recovered/Not Resolved]
  - Somnolence [Unknown]
